FAERS Safety Report 4490496-1 (Version None)
Quarter: 2004Q4

REPORT INFORMATION
  Report Type: 
  Country: None (occurrence: None)
  Receive Date: 20041028
  Receipt Date: 20421014
  Transmission Date: 20050328
  Serious: Yes (Hospitalization)
  Sender: FDA-Public Use
  Company Number: 2004-BP-08322BP

PATIENT
  Sex: Female

DRUGS (9)
  1. ATROVENT [Suspect]
     Dosage: 144 MCG (18 MCG, 2 PUFFS QID)
  2. AZMACORT (TRAIMCINOLONE ACETONIDE) [Concomitant]
  3. SEREVENT [Concomitant]
  4. MUCINEX (GUAIFENESIN) [Concomitant]
  5. ASA (ACETYLSALICYCLIC ACID) [Concomitant]
  6. CLARINEX [Concomitant]
  7. ZOLOFT [Concomitant]
  8. METAMUCIL-2 [Concomitant]
  9. LIPITOR [Concomitant]

REACTIONS (3)
  - GLAUCOMA [None]
  - SINUSITIS [None]
  - TRANSIENT ISCHAEMIC ATTACK [None]
